FAERS Safety Report 11588335 (Version 8)
Quarter: 2016Q2

REPORT INFORMATION
  Report Type: Report from Study
  Country: US (occurrence: US)
  Receive Date: 20151002
  Receipt Date: 20160520
  Transmission Date: 20160815
  Serious: Yes (Hospitalization, Other)
  Sender: FDA-Public Use
  Company Number: US-TEVA-596258USA

PATIENT
  Age: 82 Year
  Sex: Male
  Weight: 77.1 kg

DRUGS (24)
  1. FLUOROURACIL. [Suspect]
     Active Substance: FLUOROURACIL
     Dosage: OVER 46 HOURS; DAY 1 OF EACH 14 DAY CYCLE
     Route: 042
     Dates: start: 20150813, end: 20150906
  2. LEVOTHYROXINE. [Concomitant]
     Active Substance: LEVOTHYROXINE
     Indication: HYPOTHYROIDISM
     Dosage: 25 MICROGRAM DAILY;
     Route: 048
     Dates: start: 20130101
  3. ONDANSETRON [Concomitant]
     Active Substance: ONDANSETRON
     Indication: PREMEDICATION
     Dosage: 16 MILLIGRAM DAILY; Q8H AS NEEDED
     Route: 048
     Dates: start: 20150813, end: 20150905
  4. BENZTROPINE [Concomitant]
     Active Substance: BENZTROPINE
     Indication: PREMEDICATION
     Dosage: AS NEEDED
     Route: 048
     Dates: start: 20150813, end: 20150905
  5. FUCOIDAN [Concomitant]
     Indication: SUPPLEMENTATION THERAPY
     Dosage: 1 DOSAGE FORMS DAILY;
     Route: 048
     Dates: start: 20150701
  6. IRINOTECAN [Suspect]
     Active Substance: IRINOTECAN
     Indication: COLORECTAL CANCER
     Dosage: DAY 1 OF EACH 14 DAY CYCLE
     Route: 042
     Dates: start: 20150813
  7. ALOE CAPS [Concomitant]
     Indication: SUPPLEMENTATION THERAPY
     Dosage: 2 CAPSULES
     Route: 048
     Dates: start: 20100101
  8. MIRALAX [Concomitant]
     Active Substance: POLYETHYLENE GLYCOL 3350
     Dosage: 34 GRAM DAILY;
     Route: 048
     Dates: start: 20150903
  9. ONDANSETRON [Concomitant]
     Active Substance: ONDANSETRON
     Indication: NAUSEA
     Dosage: Q8H AS NEEDED
     Route: 048
     Dates: start: 20150814
  10. COMPAZINE [Concomitant]
     Active Substance: PROCHLORPERAZINE MALEATE
     Dosage: 16 MILLIGRAM DAILY; Q8H AS NEEDED
     Route: 048
     Dates: start: 20150813
  11. IMODIUM [Concomitant]
     Active Substance: LOPERAMIDE HYDROCHLORIDE
     Indication: DIARRHOEA
     Dosage: AS NEEDED
     Route: 048
     Dates: start: 20150815
  12. BENZTROPINE [Concomitant]
     Active Substance: BENZTROPINE
     Dosage: 16 MILLIGRAM DAILY; Q8H AS NEEDED
     Route: 048
     Dates: start: 20150813
  13. DEXAMETHASONE. [Concomitant]
     Active Substance: DEXAMETHASONE
     Indication: PREMEDICATION
     Dosage: AS NEEDED
     Route: 048
     Dates: start: 20150813, end: 20150905
  14. DEXAMETHASONE. [Concomitant]
     Active Substance: DEXAMETHASONE
     Dosage: 16 MILLIGRAM DAILY; Q8H AS NEEDED
     Route: 048
     Dates: start: 20150813
  15. DILTIAZEM HYDROCHLORIDE. [Concomitant]
     Active Substance: DILTIAZEM HYDROCHLORIDE
     Dosage: 120 MILLIGRAM DAILY;
     Route: 048
     Dates: start: 20121001, end: 20150912
  16. ABT-888 [Suspect]
     Active Substance: VELIPARIB
     Indication: COLORECTAL CANCER
     Dosage: DAY-2 THROUGH DAY 5 OF EACH 14 DAY CYCLE
     Route: 048
     Dates: start: 20150811
  17. VITAMIN D3 [Concomitant]
     Active Substance: CHOLECALCIFEROL
     Indication: VITAMIN SUPPLEMENTATION
     Route: 048
     Dates: start: 20100101
  18. RESPIRATORY OTC [Concomitant]
     Indication: SUPPLEMENTATION THERAPY
     Route: 048
     Dates: start: 20130701
  19. COMPAZINE [Concomitant]
     Active Substance: PROCHLORPERAZINE MALEATE
     Indication: NAUSEA
     Dosage: Q6H AS NEEDED
     Route: 048
     Dates: start: 20150814
  20. PROBIOTIC [Concomitant]
     Active Substance: PROBIOTICS NOS
     Indication: SUPPLEMENTATION THERAPY
     Route: 048
     Dates: start: 20100101
  21. LEUCOVORIN. [Concomitant]
     Active Substance: LEUCOVORIN
     Indication: COLORECTAL CANCER
     Dosage: DAY 1 OF EACH 14-DAY CYCLE
     Route: 042
     Dates: start: 20150813, end: 20150904
  22. MIRALAX [Concomitant]
     Active Substance: POLYETHYLENE GLYCOL 3350
     Indication: CONSTIPATION
     Dosage: AS NEEDED
     Route: 048
     Dates: start: 20150814, end: 20150903
  23. FLUOROURACIL. [Suspect]
     Active Substance: FLUOROURACIL
     Indication: COLORECTAL CANCER
     Dosage: UP TO 15 MINUTES; DAY 1 OF EACH 14 DAY CYCLE
     Route: 040
     Dates: start: 20150813, end: 20150813
  24. IMODIUM [Concomitant]
     Active Substance: LOPERAMIDE HYDROCHLORIDE
     Dosage: 16 MILLIGRAM DAILY; Q8H AS NEEDED
     Route: 048
     Dates: start: 20150813

REACTIONS (3)
  - Febrile neutropenia [Recovered/Resolved]
  - Dehydration [Recovered/Resolved]
  - Diarrhoea [Recovered/Resolved]

NARRATIVE: CASE EVENT DATE: 20150826
